FAERS Safety Report 15750420 (Version 2)
Quarter: 2019Q2

REPORT INFORMATION
  Report Type: Spontaneous
  Country: NL (occurrence: NL)
  Receive Date: 20181221
  Receipt Date: 20190509
  Transmission Date: 20190711
  Serious: Yes (Death, Hospitalization, Other)
  Sender: FDA-Public Use
  Company Number: NL-MYLANLABS-2018M1095416

PATIENT
  Age: 37 Year
  Sex: Female

DRUGS (6)
  1. LEPONEX 25 MG [Suspect]
     Active Substance: CLOZAPINE
     Indication: SCHIZOPHRENIA
     Dosage: 150 MILLIGRAM, QD
     Route: 048
  2. RISPERIDONE. [Suspect]
     Active Substance: RISPERIDONE
     Dosage: 4 MILLIGRAM, QD
     Route: 048
  3. LEPONEX 25 MG [Suspect]
     Active Substance: CLOZAPINE
     Dosage: UNK
     Route: 048
  4. RISPERIDONE. [Suspect]
     Active Substance: RISPERIDONE
     Indication: PRODUCT USED FOR UNKNOWN INDICATION
     Dosage: 1 DOSAGE FORM
     Route: 048
  5. CISPLATIN. [Concomitant]
     Active Substance: CISPLATIN
     Indication: CERVIX CARCINOMA
     Dosage: 0.5 MG/ML, UNK
  6. CLOMIPRAMINE [Concomitant]
     Active Substance: CLOMIPRAMINE
     Indication: OBSESSIVE-COMPULSIVE DISORDER
     Dosage: 10 MG, UNK
     Route: 048

REACTIONS (9)
  - Schizophrenia [Recovered/Resolved]
  - Constipation [Unknown]
  - Lymphadenopathy [Unknown]
  - Obsessive-compulsive disorder [Recovered/Resolved]
  - Diabetes mellitus [Unknown]
  - Malignant neoplasm of unknown primary site [Fatal]
  - Cervix carcinoma [Recovered/Resolved]
  - Obesity [Unknown]
  - Pulmonary embolism [Fatal]
